FAERS Safety Report 8398667 (Version 6)
Quarter: 2012Q4

REPORT INFORMATION
  Report Type: 
  Country: US (occurrence: US)
  Receive Date: 20120209
  Receipt Date: 20121106
  Transmission Date: 20130627
  Serious: Yes (Hospitalization, Other)
  Sender: FDA-Public Use
  Company Number: US-009507513-1202USA00873

PATIENT

DRUGS (4)
  1. FOSAMAX [Suspect]
     Indication: OSTEOPOROSIS
     Dosage: 70 mg, qw
     Route: 048
     Dates: start: 1995, end: 20090803
  2. FOSAMAX [Suspect]
     Indication: OSTEOPENIA
  3. FOSAMAX PLUS D [Suspect]
     Dosage: 70mg/2800
     Route: 048
  4. NEXIUM [Concomitant]
     Dosage: UNK
     Dates: start: 1992

REACTIONS (42)
  - Femur fracture [Recovered/Resolved]
  - Foot fracture [Unknown]
  - Inguinal hernia repair [Unknown]
  - Cataract operation [Unknown]
  - Appendicectomy [Unknown]
  - Haemorrhoid operation [Unknown]
  - Cholecystectomy [Unknown]
  - Rotator cuff repair [Unknown]
  - Breast mass [Unknown]
  - Conjunctival haemorrhage [Unknown]
  - Arthritis [Unknown]
  - Limb asymmetry [Unknown]
  - Arteriosclerosis [Unknown]
  - Rotator cuff syndrome [Unknown]
  - Fall [Unknown]
  - Carotid arteriosclerosis [Unknown]
  - Upper respiratory tract infection [Unknown]
  - Cardiomegaly [Unknown]
  - Coronary artery disease [Unknown]
  - Asthma [Unknown]
  - Carpal tunnel syndrome [Unknown]
  - Hyperlipidaemia [Unknown]
  - Varicella [Unknown]
  - Inguinal hernia [Unknown]
  - Haemorrhoids [Unknown]
  - Visual acuity reduced [Unknown]
  - Cataract [Unknown]
  - Drug ineffective [Unknown]
  - Dyspnoea exertional [Unknown]
  - Macular degeneration [Unknown]
  - Retinal detachment [Unknown]
  - Osteoarthritis [Unknown]
  - Wrist fracture [Unknown]
  - Intestinal adhesion lysis [Unknown]
  - Open reduction of fracture [Unknown]
  - Bursitis [Unknown]
  - Anxiety [Unknown]
  - Foot fracture [Unknown]
  - Macular hole [Unknown]
  - Vitrectomy [Unknown]
  - Coronary artery disease [Unknown]
  - Catheterisation cardiac [Unknown]
